FAERS Safety Report 15552333 (Version 5)
Quarter: 2019Q1

REPORT INFORMATION
  Report Type: Report from Study
  Country: GB (occurrence: GB)
  Receive Date: 20181025
  Receipt Date: 20190128
  Transmission Date: 20190417
  Serious: Yes (Hospitalization)
  Sender: FDA-Public Use
  Company Number: GB-PFIZER INC-2018432287

PATIENT
  Age: 63 Year
  Sex: Female
  Weight: 98 kg

DRUGS (4)
  1. GEMCITABINE HYDROCHLORIDE. [Suspect]
     Active Substance: GEMCITABINE HYDROCHLORIDE
     Indication: SMALL CELL LUNG CANCER
     Dosage: 150 MG/M2, QD, DAY 1,8,15 28 DAY CYCLE
     Dates: start: 20181002
  2. SRA737 [Suspect]
     Active Substance: INVESTIGATIONAL PRODUCT
     Indication: SMALL CELL LUNG CANCER
     Dosage: 500 MG, SINGLE, DAY-7
     Route: 048
     Dates: start: 20180925, end: 20180925
  3. SRA737 [Suspect]
     Active Substance: INVESTIGATIONAL PRODUCT
     Dosage: 500 MG, DAY 2,3,9,10,16,17 OF EACH 28 DAY CYCLE
     Route: 048
     Dates: start: 20181003, end: 20181011
  4. NITROFURANTOIN. [Concomitant]
     Active Substance: NITROFURANTOIN
     Dosage: UNK

REACTIONS (1)
  - Pulmonary embolism [Not Recovered/Not Resolved]

NARRATIVE: CASE EVENT DATE: 20181011
